FAERS Safety Report 6015511-5 (Version None)
Quarter: 2008Q4

REPORT INFORMATION
  Report Type: 
  Country: None (occurrence: None)
  Receive Date: 20081222
  Receipt Date: 20081216
  Transmission Date: 20090506
  Serious: Yes (Death, Hospitalization, Other)
  Sender: FDA-Public Use
  Company Number: SG-PFIZER INC-2008007664

PATIENT

DRUGS (12)
  1. BLINDED *PLACEBO [Suspect]
  2. BLINDED EPLERENONE [Suspect]
  3. ACARBOSE [Concomitant]
     Dosage: 200 MG,TWICE DAILY
     Route: 048
     Dates: start: 20060731
  4. GLICLAZIDE [Concomitant]
     Dosage: 160 MG,TWICE DAILY
     Route: 048
     Dates: start: 20060731
  5. METFORMIN HCL [Concomitant]
     Dosage: 2 G,TWICE DAILY
     Route: 048
     Dates: start: 20060731
  6. ISOSORBIDE MONONITRATE [Concomitant]
     Dosage: 30 MG,ONCE DAILY
     Route: 048
     Dates: start: 20060601
  7. ENALAPRIL MALEATE [Concomitant]
     Dosage: 20 MG,TWICE DAILY
     Route: 048
     Dates: start: 20070110
  8. SIMVASTATIN [Concomitant]
     Dosage: 20 MG,ONCE NIGHTLY
     Route: 048
     Dates: start: 20070110
  9. ACETYLSALICYLIC ACID [Concomitant]
     Dosage: 100 MG,ONCE DAILY
     Route: 048
     Dates: start: 20060802
  10. FRUSEMIDE [Concomitant]
     Dosage: 80 MG,TWICE DAILY
     Route: 048
     Dates: start: 20060802
  11. CARVEDILOL [Concomitant]
     Dosage: 50 MG,TWICE DAILY
     Route: 048
     Dates: start: 20070226
  12. OMEPRAZOLE [Concomitant]
     Dosage: 40 MG,TWICE DAILY
     Route: 048
     Dates: start: 20071015

REACTIONS (10)
  - BILIARY SEPSIS [None]
  - CHOLELITHIASIS [None]
  - CIRCULATORY COLLAPSE [None]
  - DISSEMINATED INTRAVASCULAR COAGULATION [None]
  - HEPATIC STEATOSIS [None]
  - MULTI-ORGAN FAILURE [None]
  - MYOCARDIAL INFARCTION [None]
  - PLEURAL EFFUSION [None]
  - RENAL FAILURE ACUTE [None]
  - SPLENOMEGALY [None]
